FAERS Safety Report 13496855 (Version 2)
Quarter: 2017Q2

REPORT INFORMATION
  Report Type: Report from Study
  Country: JP (occurrence: JP)
  Receive Date: 20170428
  Receipt Date: 20170517
  Transmission Date: 20170830
  Serious: Yes (Hospitalization)
  Sender: FDA-Public Use
  Company Number: JP-AMGEN-JPNCT2017065530

PATIENT
  Age: 81 Year
  Sex: Male
  Weight: 50 kg

DRUGS (10)
  1. CARDENALIN [Concomitant]
     Active Substance: DOXAZOSIN MESYLATE
     Indication: HYPERTENSION
     Dosage: 1 MG, QD
     Route: 048
     Dates: start: 201611
  2. MYSLEE [Concomitant]
     Active Substance: ZOLPIDEM TARTRATE
     Indication: INSOMNIA
     Dosage: 10 MG, QD
     Route: 048
     Dates: start: 201306
  3. DARBEPOETIN ALFA [Suspect]
     Active Substance: DARBEPOETIN ALFA
     Dosage: 40 MUG, QD
     Route: 058
     Dates: start: 20161121, end: 20161121
  4. LENDORMIN DAINIPPO [Concomitant]
     Active Substance: BROTIZOLAM
     Indication: INSOMNIA
     Dosage: 0.25 MG, QD
     Route: 048
     Dates: start: 201602
  5. DARBEPOETIN ALFA [Suspect]
     Active Substance: DARBEPOETIN ALFA
     Indication: PRODUCT USED FOR UNKNOWN INDICATION
     Dosage: 30 MUG, Q2WK
     Route: 058
     Dates: start: 20161024, end: 20161107
  6. DARBEPOETIN ALFA [Suspect]
     Active Substance: DARBEPOETIN ALFA
     Dosage: 60 MUG, Q2WK
     Route: 058
     Dates: start: 20161205, end: 20161219
  7. ADALAT [Concomitant]
     Active Substance: NIFEDIPINE
     Indication: HYPERTENSION
     Dosage: 20 MG, QD
     Route: 048
     Dates: start: 201601
  8. KAYEXALATE [Concomitant]
     Active Substance: SODIUM POLYSTYRENE SULFONATE
     Indication: RENAL FAILURE
     Dosage: 1 DF, BID
     Route: 048
     Dates: start: 201608
  9. ARTIST [Concomitant]
     Active Substance: CARVEDILOL
     Indication: HYPERTENSION
     Dosage: 10 MG, QD
     Route: 048
     Dates: start: 201612
  10. HIRUDOID [Concomitant]
     Active Substance: GLYCOSAMINOGLYCANS
     Indication: DRY SKIN
     Dosage: UNK
     Route: 061
     Dates: start: 201311

REACTIONS (5)
  - Blood potassium increased [Recovering/Resolving]
  - Gastrointestinal endoscopic therapy [Recovered/Resolved]
  - Diarrhoea [Recovered/Resolved]
  - Dizziness [Unknown]
  - Chest discomfort [Recovered/Resolved]

NARRATIVE: CASE EVENT DATE: 20170110
